FAERS Safety Report 7009575-X (Version None)
Quarter: 2010Q3

REPORT INFORMATION
  Report Type: 
  Country: None (occurrence: None)
  Receive Date: 20100923
  Receipt Date: 20100913
  Transmission Date: 20110219
  Serious: Yes (Other)
  Sender: FDA-Public Use
  Company Number: US-US-EMD SERONO, INC.-7016103

PATIENT
  Sex: Female

DRUGS (4)
  1. REBIF [Suspect]
     Indication: MULTIPLE SCLEROSIS
     Dates: start: 20100813, end: 20100101
  2. REBIF [Suspect]
     Route: 058
     Dates: start: 20100827, end: 20100101
  3. REBIF [Suspect]
     Route: 058
     Dates: start: 20100908
  4. KEFLEX [Concomitant]
     Indication: PROPHYLAXIS
     Dates: start: 20030101

REACTIONS (5)
  - DYSPEPSIA [None]
  - DYSPHAGIA [None]
  - GASTRITIS EROSIVE [None]
  - INFLUENZA LIKE ILLNESS [None]
  - INJECTION SITE ERYTHEMA [None]
